FAERS Safety Report 9239375 (Version 1)
Quarter: 2013Q2

REPORT INFORMATION
  Report Type: Spontaneous
  Country: US (occurrence: US)
  Receive Date: 20130418
  Receipt Date: 20130426
  Transmission Date: 20140414
  Serious: Yes (Other)
  Sender: FDA-Public Use
  Company Number: CHPA2013US006524

PATIENT
  Age: 79 Year
  Sex: Female

DRUGS (3)
  1. LAMISIL AT ATHLETE^S FOOT CREAM [Suspect]
     Indication: TINEA PEDIS
     Dosage: UNK, BID
     Route: 061
  2. CRESTOR [Concomitant]
     Indication: BLOOD CHOLESTEROL INCREASED
  3. COZAAR [Concomitant]
     Indication: HYPERTENSION

REACTIONS (7)
  - Renal cancer [Unknown]
  - Blood cholesterol increased [Unknown]
  - Localised infection [Unknown]
  - Tinea pedis [Unknown]
  - Pruritus [Unknown]
  - Off label use [Unknown]
  - Drug ineffective [Unknown]
